FAERS Safety Report 6793636-4 (Version None)
Quarter: 2010Q2

REPORT INFORMATION
  Report Type: 
  Country: None (occurrence: None)
  Receive Date: 20100624
  Receipt Date: 20090303
  Transmission Date: 20101027
  Serious: Yes (Other)
  Sender: FDA-Public Use
  Company Number: US-PFIZER INC-2008096340

PATIENT
  Sex: Female
  Weight: 80.726 kg

DRUGS (4)
  1. DEPO-PROVERA [Suspect]
     Indication: CONTRACEPTION
     Dosage: 150 MG,1ST DOSE, EVERY 3 MONTHS
     Route: 030
     Dates: start: 20080103, end: 20080103
  2. DEPO-PROVERA [Suspect]
     Dosage: 150 MG, 2ND DOSE, EVERY 3 MONTHS
     Route: 030
     Dates: start: 20080327, end: 20080327
  3. DEPO-PROVERA [Suspect]
     Dosage: 150 MG, 3RD DOSE, EVERY 3 MONTHS
     Route: 030
     Dates: start: 20080618, end: 20080618
  4. DEPO-PROVERA [Suspect]
     Dosage: 150 MG, LAST DOSE
     Route: 030
     Dates: start: 20080909, end: 20080909

REACTIONS (2)
  - DRUG INEFFECTIVE [None]
  - UNINTENDED PREGNANCY [None]
